FAERS Safety Report 5055191-9 (Version None)
Quarter: 2006Q3

REPORT INFORMATION
  Report Type: 
  Country: None (occurrence: None)
  Receive Date: 20060714
  Receipt Date: 20060706
  Transmission Date: 20061208
  Serious: Yes (Other)
  Sender: FDA-Public Use
  Company Number: FRWYE054307JUL06

PATIENT
  Age: 59 Year
  Sex: Female

DRUGS (1)
  1. CYCLOSPORINE [Suspect]
     Indication: PROPHYLAXIS AGAINST TRANSPLANT REJECTION
     Dosage: 225 MG 2X PER 1 DAY, ORAL
     Route: 048
     Dates: start: 20020918

REACTIONS (1)
  - CYTOLYTIC HEPATITIS [None]
